FAERS Safety Report 8606837-7 (Version None)
Quarter: 2012Q3

REPORT INFORMATION
  Report Type: 
  Country: None (occurrence: None)
  Receive Date: 20120820
  Receipt Date: 20120810
  Transmission Date: 20120928
  Serious: Yes (Other)
  Sender: FDA-Public Use
  Company Number: CHPA2012US017987

PATIENT
  Sex: Female

DRUGS (5)
  1. ANACIN                             /00141001/ [Concomitant]
  2. EXCEDRIN EXTRA STRENGTH CAPLETS [Suspect]
     Indication: ARTHRITIS
     Dosage: 1DF ALMOST EVERY DAY
     Route: 048
  3. BENADRYL ^PFIZER WARNER-LAMBERT^ [Concomitant]
     Indication: HYPERSENSITIVITY
  4. ANTIDEPRESSANTS [Concomitant]
     Indication: MIGRAINE
     Dosage: UNK
     Route: 048
     Dates: start: 20000101
  5. EXCEDRIN EXTRA STRENGTH CAPLETS [Suspect]
     Dosage: 3DF
     Route: 048

REACTIONS (4)
  - HIATUS HERNIA [None]
  - INCORRECT DOSE ADMINISTERED [None]
  - ARTHRITIS [None]
  - PAIN [None]
